FAERS Safety Report 4446332-2 (Version None)
Quarter: 2004Q3

REPORT INFORMATION
  Report Type: 
  Country: None (occurrence: None)
  Receive Date: 20040907
  Receipt Date: 20040825
  Transmission Date: 20050211
  Serious: Yes (Other)
  Sender: FDA-Public Use
  Company Number: 2004061469

PATIENT
  Sex: Male

DRUGS (2)
  1. NEURONTIN [Suspect]
     Indication: BIPOLAR DISORDER
  2. LITHIUM CARBONATE [Concomitant]

REACTIONS (7)
  - CARDIAC MURMUR [None]
  - DEPRESSION [None]
  - HEPATITIS C [None]
  - MEMORY IMPAIRMENT [None]
  - STAPHYLOCOCCAL INFECTION [None]
  - STRESS SYMPTOMS [None]
  - SUICIDE ATTEMPT [None]
